FAERS Safety Report 9241549 (Version 2)
Quarter: 2014Q1

REPORT INFORMATION
  Report Type: Spontaneous
  Country: FI (occurrence: FI)
  Receive Date: 20130419
  Receipt Date: 20140127
  Transmission Date: 20141002
  Serious: Yes (Death, Hospitalization)
  Sender: FDA-Public Use
  Company Number: FI-JNJFOC-20130408117

PATIENT
  Age: 82 Year
  Sex: Female

DRUGS (6)
  1. REMICADE [Suspect]
     Indication: RHEUMATOID ARTHRITIS
     Dosage: THERE WAS SIX MONTHS BREAK IN THE INFLIXIMAB TREATMENT IN 2006
     Route: 042
     Dates: start: 2001
  2. REMICADE [Suspect]
     Indication: RHEUMATOID ARTHRITIS
     Dosage: THERE WAS SIX MONTHS BREAK IN THE INFLIXIMAB TREATMENT IN 2006
     Route: 042
     Dates: start: 2001, end: 201210
  3. METHOTREXATE [Suspect]
     Indication: RHEUMATOID ARTHRITIS
     Route: 065
     Dates: start: 2001
  4. PREDNISONE [Suspect]
     Indication: RHEUMATOID ARTHRITIS
     Route: 065
     Dates: start: 1990
  5. NALTREXONE [Concomitant]
     Route: 065
  6. NALTREXONE [Concomitant]
     Route: 065

REACTIONS (1)
  - Pancreatic carcinoma [Fatal]
